FAERS Safety Report 12083644 (Version 4)
Quarter: 2017Q3

REPORT INFORMATION
  Report Type: Spontaneous
  Country: FR (occurrence: FR)
  Receive Date: 20160217
  Receipt Date: 20170921
  Transmission Date: 20171127
  Serious: Yes (Other)
  Sender: FDA-Public Use
  Company Number: FR-SUN PHARMACEUTICAL INDUSTRIES LTD-2016R1-111653

PATIENT
  Sex: Male

DRUGS (1)
  1. ISOTRETINOIN [Suspect]
     Active Substance: ISOTRETINOIN
     Indication: ACNE CONGLOBATA
     Dosage: 0.5 MG/KG, DAILY
     Route: 065

REACTIONS (4)
  - Autoimmune thyroiditis [Recovering/Resolving]
  - Cheilitis [Unknown]
  - Normocytic anaemia [Unknown]
  - Rhabdomyolysis [Unknown]
